FAERS Safety Report 14561646 (Version 1)
Quarter: 2018Q1

REPORT INFORMATION
  Report Type: Spontaneous
  Country: US (occurrence: US)
  Receive Date: 20180221
  Receipt Date: 20180221
  Transmission Date: 20180509
  Serious: No
  Sender: FDA-Public Use
  Company Number: None

PATIENT
  Age: 57 Year
  Sex: Female

DRUGS (1)
  1. PENICILLIN G POTASSIUM. [Suspect]
     Active Substance: PENICILLIN G POTASSIUM
     Indication: INFECTION
     Route: 042
     Dates: start: 191801

REACTIONS (3)
  - Skin swelling [None]
  - Pruritus [None]
  - Rash macular [None]

NARRATIVE: CASE EVENT DATE: 20180130
